FAERS Safety Report 12610941 (Version 1)
Quarter: 2016Q3

REPORT INFORMATION
  Report Type: Report from Study
  Country: NL (occurrence: NL)
  Receive Date: 20160801
  Receipt Date: 20160801
  Transmission Date: 20161109
  Serious: Yes (Hospitalization, Other)
  Sender: FDA-Public Use
  Company Number: NL-AMGEN-NLDSL2016097661

PATIENT
  Age: 77 Year
  Sex: Female

DRUGS (1)
  1. ARANESP [Suspect]
     Active Substance: DARBEPOETIN ALFA
     Indication: MYELODYSPLASTIC SYNDROME
     Dosage: 1 ML (500 MCG/ML), Q3WK
     Route: 058

REACTIONS (2)
  - Off label use [Unknown]
  - Hospitalisation [Unknown]

NARRATIVE: CASE EVENT DATE: 20160715
